FAERS Safety Report 7558401-9 (Version None)
Quarter: 2011Q2

REPORT INFORMATION
  Report Type: 
  Country: None (occurrence: None)
  Receive Date: 20110620
  Receipt Date: 20110607
  Transmission Date: 20111010
  Serious: Yes (Other)
  Sender: FDA-Public Use
  Company Number: PHHY2011CA29259

PATIENT
  Sex: Female

DRUGS (8)
  1. METOCLOPRAMIDE [Concomitant]
  2. RANITIDINE [Concomitant]
  3. PANTOPRAZOLE SODIUM [Concomitant]
     Indication: GASTROOESOPHAGEAL REFLUX DISEASE
  4. SYNTHROID [Concomitant]
     Indication: HYPOTHYROIDISM
     Dosage: 1 DF, QD
     Route: 048
  5. EXJADE [Suspect]
     Indication: MYELODYSPLASTIC SYNDROME
     Dosage: 1250 MG, UNK
     Route: 048
     Dates: start: 20070101
  6. VENTOLIN [Concomitant]
     Indication: ASTHMA
     Dosage: 1 DF, TID
  7. COMBIVENT [Concomitant]
     Indication: ASTHMA
  8. OMEPRAZOLE [Concomitant]

REACTIONS (7)
  - DEVICE RELATED INFECTION [None]
  - TRANSFUSION REACTION [None]
  - HEADACHE [None]
  - MALAISE [None]
  - DYSPNOEA [None]
  - PYREXIA [None]
  - VOMITING [None]
